FAERS Safety Report 6142990-5 (Version None)
Quarter: 2009Q2

REPORT INFORMATION
  Report Type: 
  Country: None (occurrence: None)
  Receive Date: 20090403
  Receipt Date: 20090325
  Transmission Date: 20091009
  Serious: Yes (Life-Threatening)
  Sender: FDA-Public Use
  Company Number: ES-ROCHE-624337

PATIENT
  Age: 68 Year
  Sex: Female

DRUGS (5)
  1. XELODA [Suspect]
     Route: 048
     Dates: start: 20080901, end: 20081101
  2. OXALIPLATIN [Suspect]
     Dosage: FREQUENCY: CYCLIC
     Route: 048
     Dates: start: 20080924, end: 20081014
  3. MEGEFREN [Concomitant]
     Route: 048
     Dates: start: 20081014, end: 20081104
  4. ZAMENE [Concomitant]
     Route: 048
     Dates: start: 20081014
  5. OMEPRAZOLE [Concomitant]
     Route: 048
     Dates: start: 20080701

REACTIONS (1)
  - ACUTE INTERSTITIAL PNEUMONITIS [None]
